FAERS Safety Report 13926183 (Version 1)
Quarter: 2017Q3

REPORT INFORMATION
  Report Type: Spontaneous
  Country: PL (occurrence: PL)
  Receive Date: 20170831
  Receipt Date: 20170831
  Transmission Date: 20171127
  Serious: Yes (Other)
  Sender: FDA-Public Use
  Company Number: PL-MYLANLABS-2017M1055188

PATIENT
  Age: 31 Year
  Sex: Female

DRUGS (8)
  1. LITHIUM. [Suspect]
     Active Substance: LITHIUM
     Indication: BIPOLAR DISORDER
     Dosage: 750 MG, QD
  2. TRAZODONE [Suspect]
     Active Substance: TRAZODONE HYDROCHLORIDE
     Indication: INSOMNIA
     Dosage: 75 MG, QD
  3. LITHIUM. [Suspect]
     Active Substance: LITHIUM
     Dosage: 1000 MG, QD
  4. QUETIAPINE. [Suspect]
     Active Substance: QUETIAPINE
     Indication: BIPOLAR DISORDER
     Dosage: 400 MG, QD
  5. DULOXETINE. [Suspect]
     Active Substance: DULOXETINE
     Indication: DEPRESSIVE SYMPTOM
     Dosage: 60 MG, QD
  6. DULOXETINE. [Suspect]
     Active Substance: DULOXETINE
     Dosage: 30 MG, QD
  7. VALPROIC ACID. [Suspect]
     Active Substance: VALPROIC ACID
     Indication: DEPRESSIVE SYMPTOM
     Dosage: 1000 MG, QD
  8. VALPROIC ACID. [Suspect]
     Active Substance: VALPROIC ACID
     Dosage: 900 MG, QD

REACTIONS (9)
  - Tremor [Unknown]
  - Acne [Unknown]
  - Hypersomnia [Unknown]
  - Seborrhoeic dermatitis [Unknown]
  - Depressive symptom [Recovering/Resolving]
  - Weight increased [Unknown]
  - Oral herpes [Recovered/Resolved]
  - Alopecia [Unknown]
  - Therapeutic response decreased [Unknown]
